FAERS Safety Report 8362490-1 (Version None)
Quarter: 2012Q2

REPORT INFORMATION
  Report Type: 
  Country: None (occurrence: None)
  Receive Date: 20120514
  Receipt Date: 20120514
  Transmission Date: 20120825
  Serious: Yes (Disabling)
  Sender: FDA-Public Use
  Company Number: None

PATIENT
  Age: 63 Year
  Sex: Female
  Weight: 52.1637 kg

DRUGS (6)
  1. CIPROFLOXACIN [Suspect]
     Indication: URINARY TRACT INFECTION
     Dosage: 250 MG 2X/DAY PO
     Route: 048
  2. NYSTATIN [Concomitant]
  3. CIPROFLOXAN [Concomitant]
  4. PROPHYLACTIC [Concomitant]
  5. NORFLOXACIN [Suspect]
     Indication: URINARY TRACT INFECTION
     Dosage: 3X/WEEK HS
     Dates: start: 19910101, end: 20020101
  6. LEVAQUIN [Concomitant]

REACTIONS (17)
  - JOINT INSTABILITY [None]
  - ACTIVITIES OF DAILY LIVING IMPAIRED [None]
  - FATIGUE [None]
  - TENDONITIS [None]
  - ARTHRALGIA [None]
  - PAIN IN EXTREMITY [None]
  - TENDON INJURY [None]
  - CONNECTIVE TISSUE DISORDER [None]
  - MUSCLE SPASMS [None]
  - SKIN LESION [None]
  - MIDDLE INSOMNIA [None]
  - POST HERPETIC NEURALGIA [None]
  - MYOSITIS [None]
  - ARACHNOIDITIS [None]
  - NEUROPATHY PERIPHERAL [None]
  - LIGAMENT SPRAIN [None]
  - MUSCULAR WEAKNESS [None]
